FAERS Safety Report 8978771 (Version 5)
Quarter: 2013Q4

REPORT INFORMATION
  Report Type: Spontaneous
  Country: US (occurrence: US)
  Receive Date: 20121220
  Receipt Date: 20131230
  Transmission Date: 20140711
  Serious: No
  Sender: FDA-Public Use
  Company Number: US-PFIZER INC-2012323378

PATIENT
  Age: 57 Year
  Sex: Female
  Weight: 76.19 kg

DRUGS (7)
  1. LYRICA [Suspect]
     Indication: PAIN
     Dosage: 150 MG, 2X/DAY
  2. NEURONTIN [Suspect]
     Indication: PAIN
     Dosage: 300 MG, 2X/DAY
  3. NEURONTIN [Suspect]
     Indication: PAIN IN EXTREMITY
     Dosage: UNK
     Dates: start: 2004, end: 2006
  4. NEURONTIN [Suspect]
     Indication: PAIN IN EXTREMITY
  5. CYMBALTA [Suspect]
     Indication: DEPRESSION
     Dosage: 60 MG, DAILY
     Dates: end: 2012
  6. CYMBALTA [Suspect]
     Indication: PAIN
  7. DIOVAN (VALSARTAN) [Concomitant]
     Indication: HYPERTENSION
     Dosage: 80 MG, 1X/DAY

REACTIONS (8)
  - Off label use [Unknown]
  - Drug ineffective for unapproved indication [Unknown]
  - Hypoaesthesia [Unknown]
  - Musculoskeletal pain [Unknown]
  - Pain [Unknown]
  - Insomnia [Unknown]
  - Diarrhoea [Unknown]
  - Malaise [Unknown]
